FAERS Safety Report 6042944-3 (Version None)
Quarter: 2009Q1

REPORT INFORMATION
  Report Type: 
  Country: None (occurrence: None)
  Receive Date: 20090119
  Receipt Date: 20090114
  Transmission Date: 20090719
  Serious: Yes (Other)
  Sender: FDA-Public Use
  Company Number: B0554286A

PATIENT
  Sex: Female

DRUGS (1)
  1. NIQUITIN CQ GUM 2MG [Suspect]
     Indication: DRUG WITHDRAWAL MAINTENANCE THERAPY
     Route: 002

REACTIONS (6)
  - FEELING ABNORMAL [None]
  - INTENTIONAL DRUG MISUSE [None]
  - MYALGIA [None]
  - MYOCARDIAL INFARCTION [None]
  - NICOTINE DEPENDENCE [None]
  - SLEEP DISORDER [None]
